FAERS Safety Report 5442076-9 (Version None)
Quarter: 2007Q3

REPORT INFORMATION
  Report Type: 
  Country: None (occurrence: None)
  Receive Date: 20070904
  Receipt Date: 20070827
  Transmission Date: 20080115
  Serious: Yes (Other)
  Sender: FDA-Public Use
  Company Number: NL-ASTRAZENECA-2007AC01601

PATIENT
  Age: 77 Year
  Sex: Female
  Weight: 82 kg

DRUGS (3)
  1. NOLVADEX [Suspect]
     Route: 048
  2. FARMORUBICINE [Suspect]
  3. TAXOTERE [Suspect]

REACTIONS (1)
  - NON-HODGKIN'S LYMPHOMA [None]
